FAERS Safety Report 5276390-7 (Version None)
Quarter: 2007Q1

REPORT INFORMATION
  Report Type: 
  Country: None (occurrence: None)
  Receive Date: 20070326
  Receipt Date: 20070312
  Transmission Date: 20070707
  Serious: Yes (Death)
  Sender: FDA-Public Use
  Company Number: US-SANOFI-SYNTHELABO-A03200702007

PATIENT
  Sex: Male

DRUGS (14)
  1. MEPERGAN [Concomitant]
     Dosage: UNK
     Route: 048
  2. LORTAB [Concomitant]
     Dosage: UNK
     Route: 048
  3. DOXEPIN HCL [Concomitant]
     Route: 048
  4. SERZONE [Concomitant]
     Route: 048
  5. CELEBREX [Concomitant]
     Route: 048
  6. FLOMAX [Concomitant]
     Route: 048
  7. CARDURA [Concomitant]
     Route: 048
  8. CARDURA [Concomitant]
     Route: 048
  9. CLARITIN [Concomitant]
     Route: 048
  10. LEVOTHYROXINE SODIUM [Concomitant]
     Route: 048
  11. REMERON [Concomitant]
     Dosage: 30 MG HS AND 15 MG QAM
     Route: 048
  12. PRILOSEC [Concomitant]
     Route: 048
  13. AMBIEN [Suspect]
     Indication: INSOMNIA
     Dosage: 1 TO 2 TABLETS AT NIGHT
     Route: 048
  14. AMBIEN [Suspect]
     Route: 048

REACTIONS (26)
  - ABDOMINAL PAIN UPPER [None]
  - AMNESIA [None]
  - ANTISOCIAL BEHAVIOUR [None]
  - COMPLETED SUICIDE [None]
  - CONFUSIONAL STATE [None]
  - DEPENDENCE [None]
  - DEPRESSION [None]
  - DISORIENTATION [None]
  - DRUG TOLERANCE INCREASED [None]
  - DYSARTHRIA [None]
  - HALLUCINATION [None]
  - HEAD INJURY [None]
  - INTENTIONAL OVERDOSE [None]
  - LOSS OF LIBIDO [None]
  - PARANOIA [None]
  - PERSONALITY CHANGE [None]
  - POOR PERSONAL HYGIENE [None]
  - PSYCHOMOTOR HYPERACTIVITY [None]
  - PSYCHOMOTOR SKILLS IMPAIRED [None]
  - ROAD TRAFFIC ACCIDENT [None]
  - SLEEP WALKING [None]
  - STARING [None]
  - SUICIDAL IDEATION [None]
  - TEMPERATURE INTOLERANCE [None]
  - TRANCE [None]
  - WEIGHT DECREASED [None]
